FAERS Safety Report 12826608 (Version 3)
Quarter: 2017Q1

REPORT INFORMATION
  Report Type: Report from Study
  Country: CA (occurrence: CA)
  Receive Date: 20161006
  Receipt Date: 20170126
  Transmission Date: 20170428
  Serious: Yes (Other)
  Sender: FDA-Public Use
  Company Number: CA-HLSUS-2016-CA-000508

PATIENT
  Sex: Female

DRUGS (1)
  1. CLOZARIL [Suspect]
     Active Substance: CLOZAPINE
     Route: 048
     Dates: start: 20050816

REACTIONS (5)
  - Urinary tract infection [Unknown]
  - Pyrexia [Unknown]
  - Diabetes mellitus [Unknown]
  - Metabolic syndrome [Unknown]
  - Obesity [Unknown]
